FAERS Safety Report 6358696-3 (Version None)
Quarter: 2009Q3

REPORT INFORMATION
  Report Type: 
  Country: None (occurrence: None)
  Receive Date: 20090916
  Receipt Date: 20090826
  Transmission Date: 20100115
  Serious: No
  Sender: FDA-Public Use
  Company Number: US-ABBOTT-09P-163-0573424-00

PATIENT
  Sex: Male
  Weight: 121.67 kg

DRUGS (7)
  1. TRILIPIX [Suspect]
     Indication: BLOOD CHOLESTEROL INCREASED
     Dosage: 135MG X 1 CAPSULE DAILY
     Route: 048
     Dates: start: 20090505, end: 20090507
  2. TRILIPIX [Suspect]
     Indication: BLOOD TRIGLYCERIDES INCREASED
  3. ASPIRIN [Concomitant]
     Indication: DRUG USE FOR UNKNOWN INDICATION
  4. PROPRANOLOL [Concomitant]
     Indication: HYPERTENSION
  5. NAPROXEN [Concomitant]
     Indication: ARTHRALGIA
  6. GLUCOSAMINE [Concomitant]
     Indication: ARTHRALGIA
  7. PROPIONATE [Concomitant]
     Indication: DRUG USE FOR UNKNOWN INDICATION
     Dosage: GEL

REACTIONS (1)
  - RASH [None]
